FAERS Safety Report 7364180-0 (Version None)
Quarter: 2011Q1

REPORT INFORMATION
  Report Type: 
  Country: None (occurrence: None)
  Receive Date: 20110321
  Receipt Date: 20110314
  Transmission Date: 20110831
  Serious: Yes (Other)
  Sender: FDA-Public Use
  Company Number: US-PFIZER INC-2011055785

PATIENT
  Sex: Female
  Weight: 81.6 kg

DRUGS (10)
  1. CHLORDIAZEPOXIDE [Concomitant]
     Indication: MUSCLE RELAXANT THERAPY
     Dosage: 500 MG, 3X/DAY
     Route: 048
  2. CYMBALTA [Concomitant]
     Dosage: 60 MG, 1X/DAY
     Route: 048
  3. IBUPROFEN [Concomitant]
     Indication: PAIN
     Dosage: 600 MG, 3X/DAY
     Route: 048
     Dates: start: 20101201
  4. METHOTREXATE [Concomitant]
     Indication: ANTIINFLAMMATORY THERAPY
     Dosage: 20 MG, WEEKLY
     Route: 048
  5. MISOPROSTOL [Concomitant]
     Indication: GASTRIC DISORDER
     Dosage: 100 MG, 3X/DAY
     Route: 048
     Dates: start: 20101201
  6. MULTI-VITAMINS [Concomitant]
     Indication: BONE DISORDER
     Dosage: 600 MG, 2X/DAY
     Route: 048
  7. LYRICA [Suspect]
     Indication: FIBROMYALGIA
     Dosage: 150 MG, 1X/DAY
     Route: 048
  8. TRAZODONE [Concomitant]
     Indication: SLEEP DISORDER
     Dosage: UNK
     Route: 048
  9. FOLIC ACID [Concomitant]
     Indication: SPLEEN DISORDER
     Dosage: 1 MG, 1X/DAY
     Route: 048
     Dates: start: 19970101
  10. CLONAZEPAM [Concomitant]
     Indication: SLEEP DISORDER
     Dosage: 1 MG, 1X/DAY
     Route: 048

REACTIONS (7)
  - VISION BLURRED [None]
  - DISORIENTATION [None]
  - DIZZINESS [None]
  - DIARRHOEA [None]
  - SOMNOLENCE [None]
  - IMPAIRED DRIVING ABILITY [None]
  - VISUAL IMPAIRMENT [None]
